FAERS Safety Report 8597636-3 (Version None)
Quarter: 2012Q3

REPORT INFORMATION
  Report Type: 
  Country: None (occurrence: None)
  Receive Date: 20120803
  Receipt Date: 20120723
  Transmission Date: 20120928
  Serious: Yes (Disabling)
  Sender: FDA-Public Use
  Company Number: 1364808

PATIENT
  Age: 91 Year
  Sex: Male

DRUGS (1)
  1. AMIODARONE HCL [Suspect]
     Indication: ARRHYTHMIA
     Dosage: 200 MG MILLIGRAM(S)

REACTIONS (4)
  - GAIT DISTURBANCE [None]
  - DYSKINESIA [None]
  - ARRHYTHMIA [None]
  - MYOCLONUS [None]
